FAERS Safety Report 23155862 (Version 5)
Quarter: 2024Q3

REPORT INFORMATION
  Report Type: Spontaneous
  Country: US (occurrence: US)
  Receive Date: 20231107
  Receipt Date: 20240823
  Transmission Date: 20241017
  Serious: Yes (Death)
  Sender: DAIICHI
  Company Number: US-DSJP-DSU-2023-144769

PATIENT
  Sex: Female

DRUGS (2)
  1. ENHERTU [Suspect]
     Active Substance: FAM-TRASTUZUMAB DERUXTECAN-NXKI
     Indication: HER2 positive breast cancer
     Dosage: UNK
     Route: 065
     Dates: start: 20220601, end: 20220601
  2. ENHERTU [Suspect]
     Active Substance: FAM-TRASTUZUMAB DERUXTECAN-NXKI
     Indication: Breast cancer metastatic

REACTIONS (11)
  - Death [Fatal]
  - Balance disorder [Unknown]
  - Stress [Unknown]
  - Anxiety [Unknown]
  - Affective disorder [Unknown]
  - Hypersomnia [Unknown]
  - Necrosis [Not Recovered/Not Resolved]
  - Diplopia [Unknown]
  - Dizziness [Unknown]
  - Nausea [Unknown]
  - Fatigue [Unknown]

NARRATIVE: CASE EVENT DATE: 20240101
